FAERS Safety Report 5377684-7 (Version None)
Quarter: 2007Q3

REPORT INFORMATION
  Report Type: 
  Country: None (occurrence: None)
  Receive Date: 20070703
  Receipt Date: 20070622
  Transmission Date: 20080115
  Serious: Yes (Other)
  Sender: FDA-Public Use
  Company Number: US-PFIZER INC-2007038771

PATIENT
  Age: 43 Year
  Sex: Male
  Weight: 90.7 kg

DRUGS (3)
  1. DETROL LA [Suspect]
     Indication: URGE INCONTINENCE
     Route: 048
     Dates: start: 20070101, end: 20070501
  2. DETROL LA [Suspect]
     Indication: BENIGN PROSTATIC HYPERPLASIA
  3. WELLBUTRIN [Concomitant]

REACTIONS (1)
  - EJACULATION FAILURE [None]
